FAERS Safety Report 8787912 (Version 1)
Quarter: 2012Q4

REPORT INFORMATION
  Report Type: 
  Country: US (occurrence: US)
  Receive Date: 20120914
  Receipt Date: 20120914
  Transmission Date: 20130627
  Serious: No
  Sender: FDA-Public Use
  Company Number: US-VERTEX PHARMACEUTICAL INC.-AE-2012-005433

PATIENT
  Age: 58 Year
  Sex: Male
  Weight: 95.46 kg

DRUGS (8)
  1. INCIVEK [Suspect]
     Indication: HEPATITIS C
     Route: 048
     Dates: start: 20120406, end: 20120629
  2. RIBAPAK [Concomitant]
     Indication: HEPATITIS C
     Route: 048
     Dates: start: 20120406
  3. PEGASYS [Concomitant]
     Indication: HEPATITIS C
     Route: 058
     Dates: start: 20120406
  4. LANTIS/HUMALOG INSULINS [Concomitant]
     Indication: DIABETES MELLITUS
     Route: 058
  5. CRESTOR [Concomitant]
     Route: 048
  6. LISINOPRIL [Concomitant]
     Indication: HYPERTENSION
     Route: 048
  7. HCTZ/TRIAMT [Concomitant]
     Indication: HYPERTENSION
     Route: 048
  8. TRADJENTI [Concomitant]
     Route: 048

REACTIONS (11)
  - Influenza like illness [Not Recovered/Not Resolved]
  - Ocular hyperaemia [Not Recovered/Not Resolved]
  - Visual impairment [Not Recovered/Not Resolved]
  - Pollakiuria [Unknown]
  - Anxiety [Unknown]
  - Emotional disorder [Unknown]
  - Decreased interest [Unknown]
  - Fatigue [Not Recovered/Not Resolved]
  - Anaemia [Not Recovered/Not Resolved]
  - Pruritus [Not Recovered/Not Resolved]
  - Dysgeusia [Not Recovered/Not Resolved]
